FAERS Safety Report 6949834-X (Version None)
Quarter: 2010Q3

REPORT INFORMATION
  Report Type: 
  Country: None (occurrence: None)
  Receive Date: 20100828
  Receipt Date: 20100116
  Transmission Date: 20110219
  Serious: No
  Sender: FDA-Public Use
  Company Number: US-ABBOTT-10P-163-0620036-00

PATIENT
  Sex: Male

DRUGS (3)
  1. NIASPAN [Suspect]
     Indication: PRODUCT USED FOR UNKNOWN INDICATION
     Dosage: 3 TABLETS QHS
  2. NIASPAN [Suspect]
     Dosage: 2 TABLETS FOR 2 WEEKS QHS
  3. NIASPAN [Suspect]
     Dosage: 1TABLET FOR TWO WEEKS QHS
     Dates: start: 20091201

REACTIONS (1)
  - PRURITUS [None]
